FAERS Safety Report 24574269 (Version 1)
Quarter: 2024Q4

REPORT INFORMATION
  Report Type: Spontaneous
  Country: BR (occurrence: BR)
  Receive Date: 20241104
  Receipt Date: 20241104
  Transmission Date: 20250114
  Serious: Yes (Hospitalization)
  Sender: MERCK KGAA
  Company Number: BR-Merck Healthcare KGaA-2024056991

PATIENT
  Age: 67 Year
  Sex: Female

DRUGS (1)
  1. EUTHYROX [Suspect]
     Active Substance: LEVOTHYROXINE SODIUM
     Indication: Post procedural hypothyroidism
     Route: 048
     Dates: start: 20101001

REACTIONS (3)
  - Heat stroke [Recovered/Resolved]
  - Blood pressure decreased [Recovered/Resolved]
  - Puncture site bruise [Unknown]

NARRATIVE: CASE EVENT DATE: 20240101
